FAERS Safety Report 5993145-6 (Version None)
Quarter: 2008Q4

REPORT INFORMATION
  Report Type: 
  Country: None (occurrence: None)
  Receive Date: 20081210
  Receipt Date: 20081210
  Transmission Date: 20090506
  Serious: Yes (Other)
  Sender: FDA-Public Use
  Company Number: None

PATIENT
  Sex: Male
  Weight: 134.2647 kg

DRUGS (4)
  1. VIAGRA [Suspect]
     Indication: ERECTILE DYSFUNCTION
     Dosage: 1 TABLET PRN COITUS PO
     Route: 048
     Dates: start: 20081001, end: 20081001
  2. VIAGRA [Suspect]
     Indication: ERECTILE DYSFUNCTION
     Dosage: 1 TABLET PRN COITUS PO
     Route: 048
     Dates: start: 20081124, end: 20081124
  3. LISINOPRIL AND HYDROCHLOROTHIAZIDE [Concomitant]
  4. . [Concomitant]

REACTIONS (2)
  - DEAFNESS [None]
  - TINNITUS [None]
